FAERS Safety Report 25135175 (Version 1)
Quarter: 2025Q1

REPORT INFORMATION
  Report Type: Report from Study
  Country: US (occurrence: US)
  Receive Date: 20250328
  Receipt Date: 20250328
  Transmission Date: 20250409
  Serious: Yes (Other)
  Sender: RECORDATI
  Company Number: US-RECORDATI RARE DISEASE INC.-2023009783

PATIENT
  Sex: Female
  Weight: 90.703 kg

DRUGS (26)
  1. ISTURISA [Suspect]
     Active Substance: OSILODROSTAT PHOSPHATE
     Indication: Pituitary-dependent Cushing^s syndrome
     Route: 048
     Dates: start: 202105
  2. ISTURISA [Suspect]
     Active Substance: OSILODROSTAT PHOSPHATE
     Dosage: 10 MG AND 5 MG TAB TWICE DAILY
     Route: 048
     Dates: start: 20220912, end: 2022
  3. ISTURISA [Suspect]
     Active Substance: OSILODROSTAT PHOSPHATE
     Dosage: 10 MG, BID
     Route: 048
     Dates: start: 20221028, end: 20221209
  4. ISTURISA [Suspect]
     Active Substance: OSILODROSTAT PHOSPHATE
     Route: 048
     Dates: start: 20230425, end: 20230729
  5. ISTURISA [Suspect]
     Active Substance: OSILODROSTAT PHOSPHATE
     Dosage: 10 MG QAM AND 5 MG EVERY EVENING
     Route: 048
     Dates: start: 20230729, end: 202308
  6. ISTURISA [Suspect]
     Active Substance: OSILODROSTAT PHOSPHATE
     Route: 048
     Dates: start: 20230830, end: 20230906
  7. ALBUTEROL [Concomitant]
     Active Substance: ALBUTEROL
     Indication: Asthma
     Dates: start: 2006
  8. BUSPAR [Concomitant]
     Active Substance: BUSPIRONE HYDROCHLORIDE
     Indication: Anxiety
     Dosage: 15 MG, BID
     Route: 048
     Dates: start: 2013, end: 20230802
  9. LEVOTHYROXINE [Concomitant]
     Active Substance: LEVOTHYROXINE
     Indication: Central hypothyroidism
     Dosage: 100 MICROGRAM, QD
     Route: 048
     Dates: start: 201701
  10. HYDROCORTISONE [Concomitant]
     Active Substance: HYDROCORTISONE
     Indication: Adrenal insufficiency
     Dosage: 10 MG, QD
     Route: 048
     Dates: start: 201804, end: 20230823
  11. HYDROCORTISONE [Concomitant]
     Active Substance: HYDROCORTISONE
     Indication: Primary adrenal insufficiency
     Dosage: 10 MG IN AM AND 5 MG IN PM, BID
     Route: 048
     Dates: start: 20230830
  12. MICROGESTIN [Concomitant]
     Active Substance: ETHINYL ESTRADIOL\NORETHINDRONE ACETATE
     Indication: Secondary hypogonadism
     Dosage: 20 MICROGRAM, QD
     Route: 048
     Dates: start: 201901, end: 20230802
  13. LAMOTRIGINE [Concomitant]
     Active Substance: LAMOTRIGINE
     Indication: Epilepsy
     Dosage: 100 MG, QD
     Route: 048
     Dates: start: 202202
  14. CYANOCOBALAMIN [Concomitant]
     Active Substance: CYANOCOBALAMIN
     Indication: Vitamin B12 deficiency
     Dosage: 5000 MICROGRAM, QD
     Route: 048
     Dates: start: 2022, end: 20230719
  15. CYMBALTA [Concomitant]
     Active Substance: DULOXETINE HYDROCHLORIDE
     Indication: Depression
     Dosage: 60 MG, QD
     Route: 048
     Dates: start: 2013, end: 20230719
  16. KEPPRA [Concomitant]
     Active Substance: LEVETIRACETAM
     Indication: Epilepsy
     Dosage: 1500 MG, BID
     Route: 048
     Dates: start: 2015, end: 20230719
  17. LISINOPRIL [Concomitant]
     Active Substance: LISINOPRIL
     Indication: Hypertension
     Dosage: 10 MG, QD
     Route: 048
     Dates: start: 201611, end: 20230719
  18. METOPROLOL SUCCINATE [Concomitant]
     Active Substance: METOPROLOL SUCCINATE
     Indication: Hypertension
     Dosage: 50 MG, QD
     Route: 048
     Dates: start: 202001, end: 20230719
  19. ROSUVASTATIN [Concomitant]
     Active Substance: ROSUVASTATIN
     Indication: Hyperlipidaemia
     Dosage: 10 MG, QD
     Route: 048
     Dates: start: 202110, end: 20230719
  20. FLORINEF ACETATE [Concomitant]
     Active Substance: FLUDROCORTISONE ACETATE
     Indication: Primary adrenal insufficiency
     Dosage: 0.05 MG, QD
     Route: 048
     Dates: start: 20230423, end: 20230719
  21. FLORINEF ACETATE [Concomitant]
     Active Substance: FLUDROCORTISONE ACETATE
     Dosage: 0.05 MG, QD
     Route: 048
     Dates: start: 20230830
  22. PASIREOTIDE [Concomitant]
     Active Substance: PASIREOTIDE
     Indication: Cushing^s syndrome
     Dosage: 0.3 MG, BID
     Route: 058
     Dates: start: 201502, end: 201507
  23. PASIREOTIDE [Concomitant]
     Active Substance: PASIREOTIDE
     Dosage: 0.3 MG, BID; DISCONTINUED DUE TO ADVERSE EVENT
     Route: 058
     Dates: start: 2017, end: 201708
  24. KETOCONAZOLE [Concomitant]
     Active Substance: KETOCONAZOLE
     Indication: Cushing^s syndrome
     Dosage: 200 MG, QD; DISCONTINUED DUE TO ADVERSE EVENT
     Route: 048
     Dates: start: 2015, end: 2015
  25. CABERGOLINE [Concomitant]
     Active Substance: CABERGOLINE
     Indication: Cushing^s syndrome
     Dosage: 0.25 MG, QD, DISCONTINUED DUE TO ADVERSE EVENT
     Route: 048
     Dates: start: 201705, end: 201710
  26. LETROZOLE [Concomitant]
     Active Substance: LETROZOLE
     Indication: Product used for unknown indication

REACTIONS (4)
  - Abortion spontaneous [Recovered/Resolved]
  - COVID-19 [Unknown]
  - Nausea [Recovered/Resolved]
  - Maternal exposure during pregnancy [Recovered/Resolved]

NARRATIVE: CASE EVENT DATE: 20230101
